FAERS Safety Report 13162508 (Version 3)
Quarter: 2017Q1

REPORT INFORMATION
  Report Type: Spontaneous
  Country: JP (occurrence: JP)
  Receive Date: 20170130
  Receipt Date: 20170217
  Transmission Date: 20170428
  Serious: Yes (Hospitalization, Other)
  Sender: FDA-Public Use
  Company Number: JP-009507513-1701JPN001801J

PATIENT
  Age: 37 Year
  Sex: Female

DRUGS (20)
  1. OPDIVO [Suspect]
     Active Substance: NIVOLUMAB
     Dosage: 2 MG/KG, DAY
     Route: 041
     Dates: start: 20141007, end: 20141007
  2. OPDIVO [Suspect]
     Active Substance: NIVOLUMAB
     Dosage: 2 MG/KG, DAY
     Route: 041
     Dates: start: 20150126, end: 20150126
  3. OPDIVO [Suspect]
     Active Substance: NIVOLUMAB
     Dosage: 2 MG/KG, DAY
     Route: 041
     Dates: start: 20150216, end: 20150216
  4. OPDIVO [Suspect]
     Active Substance: NIVOLUMAB
     Dosage: 2 MG/KG, DAY
     Route: 041
     Dates: start: 20150420, end: 20150420
  5. OPDIVO [Suspect]
     Active Substance: NIVOLUMAB
     Dosage: 2 MG/KG, DAY
     Route: 041
     Dates: start: 20141027, end: 20141027
  6. OPDIVO [Suspect]
     Active Substance: NIVOLUMAB
     Dosage: 2 MG/KG, DAY
     Route: 041
     Dates: start: 20150309, end: 20150309
  7. OPDIVO [Suspect]
     Active Substance: NIVOLUMAB
     Dosage: 2 MG/KG, DAY
     Route: 041
     Dates: start: 20150330, end: 20150330
  8. OPDIVO [Suspect]
     Active Substance: NIVOLUMAB
     Dosage: 2 MG/KG, DAY
     Route: 041
     Dates: start: 20150713, end: 20150713
  9. OPDIVO [Suspect]
     Active Substance: NIVOLUMAB
     Dosage: 2 MG/KG, DAY
     Route: 041
     Dates: start: 20150803, end: 20150803
  10. OPDIVO [Suspect]
     Active Substance: NIVOLUMAB
     Dosage: 2 MG/KG, DAY
     Route: 041
     Dates: start: 20150601, end: 20150601
  11. JANUVIA [Suspect]
     Active Substance: SITAGLIPTIN PHOSPHATE
     Indication: TYPE 2 DIABETES MELLITUS
     Dosage: UNK
     Route: 048
  12. OPDIVO [Suspect]
     Active Substance: NIVOLUMAB
     Indication: MALIGNANT MELANOMA
     Dosage: 2 MG/KG, Q3W
  13. OPDIVO [Suspect]
     Active Substance: NIVOLUMAB
     Dosage: 2 MG/KG, DAY
     Route: 041
     Dates: start: 20150105, end: 20150105
  14. OPDIVO [Suspect]
     Active Substance: NIVOLUMAB
     Dosage: 2 MG/KG, DAY
     Route: 041
     Dates: start: 20150622, end: 20150622
  15. OPDIVO [Suspect]
     Active Substance: NIVOLUMAB
     Dosage: 2 MG/KG, DAY
     Route: 041
     Dates: start: 20141117, end: 20141117
  16. SOLU-CORTEF [Concomitant]
     Active Substance: HYDROCORTISONE SODIUM SUCCINATE
     Dosage: UNK
     Dates: start: 20150708, end: 20150708
  17. OPDIVO [Suspect]
     Active Substance: NIVOLUMAB
     Dosage: 2 MG/KG, DAY
     Route: 041
     Dates: start: 20141208, end: 20141208
  18. OPDIVO [Suspect]
     Active Substance: NIVOLUMAB
     Dosage: 2 MG/KG, DAY
     Route: 041
     Dates: start: 20150915, end: 20150915
  19. OPDIVO [Suspect]
     Active Substance: NIVOLUMAB
     Dosage: 2 MG/KG, DAY
     Route: 041
     Dates: start: 20150511, end: 20150511
  20. OPDIVO [Suspect]
     Active Substance: NIVOLUMAB
     Dosage: 2 MG/KG, DAY
     Route: 041
     Dates: start: 20150824, end: 20150824

REACTIONS (11)
  - Blood thyroid stimulating hormone increased [Recovered/Resolved]
  - Oral candidiasis [Recovered/Resolved]
  - Blister [Recovering/Resolving]
  - Myelodysplastic syndrome [Not Recovered/Not Resolved]
  - Brain oedema [Recovered/Resolved]
  - Palmar-plantar erythrodysaesthesia syndrome [Recovering/Resolving]
  - Alanine aminotransferase increased [Not Recovered/Not Resolved]
  - Blood alkaline phosphatase increased [Not Recovered/Not Resolved]
  - Tri-iodothyronine free decreased [Not Recovered/Not Resolved]
  - Headache [Recovered/Resolved]
  - Aspartate aminotransferase increased [Not Recovered/Not Resolved]

NARRATIVE: CASE EVENT DATE: 20141023
